FAERS Safety Report 5031742-5 (Version None)
Quarter: 2006Q2

REPORT INFORMATION
  Report Type: 
  Country: None (occurrence: None)
  Receive Date: 20060616
  Receipt Date: 20060529
  Transmission Date: 20061013
  Serious: Yes (Death, Life-Threatening, Hospitalization)
  Sender: FDA-Public Use
  Company Number: PK200605006686

PATIENT
  Age: 69 Year
  Sex: Male

DRUGS (3)
  1. GEMCITABINE [Suspect]
     Indication: NON-SMALL CELL LUNG CANCER
     Dosage: 1400 MG, INTRAVENOUS
     Route: 042
     Dates: start: 20050705, end: 20050705
  2. AMIKACIN [Concomitant]
  3. CEPHALOSPORINS AND RELATED SUBSTANCES [Concomitant]

REACTIONS (1)
  - FEBRILE NEUTROPENIA [None]
